FAERS Safety Report 5597822-0 (Version None)
Quarter: 2007Q4

REPORT INFORMATION
  Report Type: 
  Country: None (occurrence: None)
  Receive Date: 20071221
  Receipt Date: 20070213
  Transmission Date: 20080405
  Serious: Yes (Hospitalization)
  Sender: FDA-Public Use
  Company Number: US-2007-002966

PATIENT
  Age: 70 Year
  Sex: Male

DRUGS (6)
  1. SOTALOL HCL [Suspect]
     Indication: ATRIAL FIBRILLATION
     Dosage: 80 MG, ORAL
     Route: 048
     Dates: start: 19991201
  2. PRINIVIL [Suspect]
     Indication: HYPERTENSION
     Dosage: 10 MG, 1X/DAY, ORAL
     Route: 048
     Dates: start: 20000901
  3. TERAZOSIN HCL [Suspect]
     Indication: BENIGN PROSTATIC HYPERPLASIA
     Dosage: 2 MG, BED T., ORAL
     Route: 048
     Dates: start: 19991201
  4. GEMFIBROZIL [Concomitant]
  5. LORATADINE [Concomitant]
  6. PIROXICAM [Concomitant]

REACTIONS (3)
  - BLOOD PRESSURE ORTHOSTATIC DECREASED [None]
  - DIZZINESS [None]
  - HEART RATE INCREASED [None]
